FAERS Safety Report 24010977 (Version 3)
Quarter: 2024Q3

REPORT INFORMATION
  Report Type: Spontaneous
  Country: US (occurrence: US)
  Receive Date: 20240625
  Receipt Date: 20240701
  Transmission Date: 20241017
  Serious: No
  Sender: ABBVIE
  Company Number: US-ABBVIE-5807901

PATIENT
  Sex: Female
  Weight: 45.359 kg

DRUGS (1)
  1. SYNTHROID [Suspect]
     Active Substance: LEVOTHYROXINE SODIUM
     Indication: Radioactive iodine therapy
     Dosage: FORM STRENGTH: 50 MICROGRAM
     Route: 048
     Dates: start: 1990

REACTIONS (7)
  - Abdominal distension [Unknown]
  - Raynaud^s phenomenon [Not Recovered/Not Resolved]
  - Gastrointestinal pain [Recovered/Resolved]
  - Diarrhoea [Recovered/Resolved]
  - Arthropathy [Not Recovered/Not Resolved]
  - Product physical issue [Unknown]
  - Polyarthritis [Not Recovered/Not Resolved]

NARRATIVE: CASE EVENT DATE: 19900101
